FAERS Safety Report 16688094 (Version 2)
Quarter: 2019Q3

REPORT INFORMATION
  Report Type: Report from Study
  Country: CN (occurrence: CN)
  Receive Date: 20190809
  Receipt Date: 20190814
  Transmission Date: 20191004
  Serious: Yes (Death)
  Sender: FDA-Public Use
  Company Number: CN-PFIZER INC-2014344652

PATIENT
  Age: 19 Year
  Sex: Male
  Weight: 65 kg

DRUGS (7)
  1. IMIPENEM CILASTATIN SODIUM [Concomitant]
     Active Substance: CILASTATIN SODIUM\IMIPENEM
     Indication: ANTI-INFECTIVE THERAPY
     Dosage: 2X/DAY
     Route: 042
     Dates: start: 20141209, end: 20141209
  2. ORNIDAZOLE SODIUM CHLORIDE [Concomitant]
     Indication: ANTI-INFECTIVE THERAPY
     Dosage: 100 ML, 1X/DAY
     Route: 042
     Dates: start: 20141206, end: 20141206
  3. DEXAMETHASONE SODIUM PHOSPHATE. [Concomitant]
     Active Substance: DEXAMETHASONE SODIUM PHOSPHATE
     Dosage: 5 MG, 1X/DAY
     Route: 042
     Dates: start: 20141209, end: 20141209
  4. TEICOPLANIN [Concomitant]
     Active Substance: TEICOPLANIN
     Indication: ANTI-INFECTIVE THERAPY
     Dosage: 0.4 G, 1X/DAY
     Route: 042
     Dates: start: 20141201, end: 20141201
  5. MONTMORILLONITE [Concomitant]
     Active Substance: MONTMORILLONITE
     Indication: ANTIDIARRHOEAL SUPPORTIVE CARE
     Dosage: 6 G, 2X/DAY
     Route: 048
     Dates: start: 20141209, end: 20141209
  6. CYTARABINE. [Suspect]
     Active Substance: CYTARABINE
     Indication: ACUTE LYMPHOCYTIC LEUKAEMIA
     Dosage: 5.31 G, 2X/DAY
     Route: 042
     Dates: start: 20141205, end: 20141205
  7. BERBERINE HYDROCHLORIDE [Concomitant]
     Active Substance: BERBERINE
     Indication: ANTIDIARRHOEAL SUPPORTIVE CARE
     Dosage: 0.3 G, 1X/DAY
     Route: 048
     Dates: start: 20141209, end: 20141209

REACTIONS (2)
  - Respiratory failure [Fatal]
  - Lung infection [Fatal]

NARRATIVE: CASE EVENT DATE: 20141208
